FAERS Safety Report 4376954-9 (Version None)
Quarter: 2004Q2

REPORT INFORMATION
  Report Type: 
  Country: None (occurrence: None)
  Receive Date: 20040614
  Receipt Date: 20040604
  Transmission Date: 20050107
  Serious: Yes (Hospitalization)
  Sender: FDA-Public Use
  Company Number: US-AMGEN-US078918

PATIENT
  Sex: Male

DRUGS (14)
  1. SENSIPAR [Suspect]
     Indication: HYPERPARATHYROIDISM SECONDARY
     Route: 048
     Dates: start: 20040130
  2. EPOGEN [Concomitant]
     Route: 058
  3. CLONIDINE HCL [Concomitant]
  4. LAMIVUDINE [Concomitant]
  5. RITONAVIR [Concomitant]
  6. CALCIUM CARBONATE [Concomitant]
     Route: 048
  7. GABAPENTIN [Concomitant]
  8. OMEPRAZOLE [Concomitant]
     Route: 048
  9. TERAZOSIN HCL [Concomitant]
  10. FOSINOPRIL SODIUM [Concomitant]
  11. TEMAZEPAM [Concomitant]
  12. DOCUSATE [Concomitant]
  13. HEPARIN [Concomitant]
     Route: 058
  14. BACTRIM [Concomitant]

REACTIONS (13)
  - ABDOMINAL MASS [None]
  - ABDOMINAL PAIN [None]
  - BLOOD ALBUMIN DECREASED [None]
  - BLOOD CALCIUM DECREASED [None]
  - CALCINOSIS [None]
  - CONSTIPATION [None]
  - DIALYSIS [None]
  - DIARRHOEA [None]
  - FLANK PAIN [None]
  - INTESTINAL OBSTRUCTION [None]
  - NAUSEA [None]
  - PANCREATIC DISORDER [None]
  - SPINAL DISORDER [None]
